FAERS Safety Report 17485221 (Version 1)
Quarter: 2020Q1

REPORT INFORMATION
  Report Type: Spontaneous
  Country: ES (occurrence: ES)
  Receive Date: 20200302
  Receipt Date: 20200302
  Transmission Date: 20200409
  Serious: Yes (Hospitalization, Other)
  Sender: FDA-Public Use
  Company Number: ES-B.I. PHARMACEUTICALS,INC./RIDGEFIELD-2020-12-011064

PATIENT
  Age: 80 Year
  Sex: Female
  Weight: 71 kg

DRUGS (6)
  1. NOCTAMID [Concomitant]
     Active Substance: LORMETAZEPAM
     Indication: PRODUCT USED FOR UNKNOWN INDICATION
     Dosage: 1 COMPRIMIDO CADA DIA
     Route: 065
     Dates: start: 20090620
  2. SYNJARDY [Suspect]
     Active Substance: EMPAGLIFLOZIN\METFORMIN HYDROCHLORIDE
     Indication: TYPE 2 DIABETES MELLITUS
     Dosage: 1 COMPRIMIDO CADA 12 HORAS
     Route: 065
     Dates: start: 20181031, end: 20191230
  3. DOXIUM FUERTE [Concomitant]
     Indication: TYPE 2 DIABETES MELLITUS
     Dosage: 1 CAPSULA CADA 2 DIAS
     Route: 065
     Dates: start: 20140130
  4. ARTEDIL [Concomitant]
     Active Substance: MANIDIPINE HYDROCHLORIDE
     Indication: HYPERTENSION
     Dosage: 1 COMPRIMIDO CADA DIA
     Route: 065
     Dates: start: 20170525
  5. TRANKIMAZIN [Concomitant]
     Active Substance: ALPRAZOLAM
     Indication: MAJOR DEPRESSION
     Dosage: 1 COMPRIMIDO CADA DIA
     Route: 065
     Dates: start: 20171204
  6. GLICLAZIDA [Concomitant]
     Active Substance: GLICLAZIDE
     Indication: TYPE 2 DIABETES MELLITUS
     Dosage: 3 COMPRIMIDO CADA DIA
     Route: 048
     Dates: start: 20180423

REACTIONS (2)
  - Metabolic acidosis [Recovered/Resolved]
  - Lactic acidosis [Recovered/Resolved]

NARRATIVE: CASE EVENT DATE: 20191223
